FAERS Safety Report 20950427 (Version 1)
Quarter: 2022Q2

REPORT INFORMATION
  Report Type: Spontaneous
  Country: US (occurrence: None)
  Receive Date: 20220612
  Receipt Date: 20220612
  Transmission Date: 20220721
  Serious: Yes (Other)
  Sender: FDA-Public Use
  Company Number: None

PATIENT
  Age: 63 Year
  Sex: Female
  Weight: 80.55 kg

DRUGS (4)
  1. NIRMATRELVIR\RITONAVIR [Suspect]
     Active Substance: NIRMATRELVIR\RITONAVIR
     Indication: COVID-19
     Dates: start: 20220611, end: 20220612
  2. PREDNISONE [Concomitant]
     Active Substance: PREDNISONE
     Dates: start: 20220611
  3. ONDANSETRON [Concomitant]
     Active Substance: ONDANSETRON
  4. IBUPROFEN [Concomitant]
     Active Substance: IBUPROFEN

REACTIONS (3)
  - Nausea [None]
  - Vomiting [None]
  - Rectal haemorrhage [None]

NARRATIVE: CASE EVENT DATE: 20220612
